FAERS Safety Report 24529492 (Version 1)
Quarter: 2024Q4

REPORT INFORMATION
  Report Type: Spontaneous
  Country: CN (occurrence: CN)
  Receive Date: 20241021
  Receipt Date: 20241021
  Transmission Date: 20250115
  Serious: Yes (Hospitalization, Other)
  Sender: MERCK
  Company Number: CN-009507513-2410CHN005723

PATIENT
  Age: 61 Year
  Sex: Male
  Weight: 47 kg

DRUGS (1)
  1. JANUVIA [Suspect]
     Active Substance: SITAGLIPTIN PHOSPHATE
     Indication: Blood glucose abnormal
     Dosage: 100 MILLIGRAM, QD
     Route: 048
     Dates: start: 20241004, end: 20241009

REACTIONS (2)
  - Diabetes mellitus [Unknown]
  - Abdominal distension [Recovering/Resolving]

NARRATIVE: CASE EVENT DATE: 20241001
